FAERS Safety Report 4887405-X (Version None)
Quarter: 2006Q1

REPORT INFORMATION
  Report Type: 
  Country: None (occurrence: None)
  Receive Date: 20060117
  Receipt Date: 20060105
  Transmission Date: 20060701
  Serious: Yes (Other)
  Sender: FDA-Public Use
  Company Number: 2006BH000266

PATIENT
  Age: 67 Year
  Sex: 0

DRUGS (2)
  1. POLYGAM S/D [Suspect]
     Dosage: SEE IMAGE
     Route: 042
     Dates: start: 19960605, end: 19960605
  2. POLYGAM S/D [Suspect]
     Dosage: SEE IMAGE
     Route: 042
     Dates: start: 19960703, end: 19960703

REACTIONS (3)
  - CEREBROVASCULAR ACCIDENT [None]
  - EMBOLISM [None]
  - TRANSIENT ISCHAEMIC ATTACK [None]
